FAERS Safety Report 16546129 (Version 2)
Quarter: 2019Q3

REPORT INFORMATION
  Report Type: Spontaneous
  Country: IT (occurrence: IT)
  Receive Date: 20190709
  Receipt Date: 20190722
  Transmission Date: 20191004
  Serious: Yes (Hospitalization, Other)
  Sender: FDA-Public Use
  Company Number: IT-JNJFOC-20190702414

PATIENT
  Age: 85 Year
  Sex: Male

DRUGS (2)
  1. CONGESCOR [Concomitant]
     Active Substance: BISOPROLOL
     Dosage: UNK
  2. RIVAROXABAN [Suspect]
     Active Substance: RIVAROXABAN
     Indication: ATRIAL FIBRILLATION
     Dosage: XARELTO 20 MG
     Route: 048
     Dates: start: 201906

REACTIONS (4)
  - Hospitalisation [Recovered/Resolved]
  - Transaminases increased [Unknown]
  - Blood bilirubin increased [Unknown]
  - Pneumonitis [Unknown]
